FAERS Safety Report 10215155 (Version 1)
Quarter: 2014Q2

REPORT INFORMATION
  Report Type: Spontaneous
  Country: RU (occurrence: RU)
  Receive Date: 20140603
  Receipt Date: 20140603
  Transmission Date: 20141212
  Serious: Yes (Other)
  Sender: FDA-Public Use
  Company Number: CHPA2014RU006762

PATIENT
  Sex: Female

DRUGS (2)
  1. OTRIVIN [Suspect]
     Indication: RHINITIS
     Dosage: 1 DF, QD
     Route: 045
     Dates: start: 20140512, end: 20140512
  2. OTRIVIN [Suspect]
     Dosage: 2 DF, UNK
     Route: 045
     Dates: start: 20140513, end: 20140513

REACTIONS (1)
  - Anosmia [Unknown]
